FAERS Safety Report 6236577-3 (Version None)
Quarter: 2009Q2

REPORT INFORMATION
  Report Type: 
  Country: None (occurrence: None)
  Receive Date: 20090619
  Receipt Date: 20090609
  Transmission Date: 20091009
  Serious: Yes (Hospitalization)
  Sender: FDA-Public Use
  Company Number: GB-JNJFOC-20090603434

PATIENT
  Age: 22 Year
  Sex: Female

DRUGS (1)
  1. GRISEOFULVIN [Suspect]
     Indication: TRICHOPHYTOSIS
     Route: 065

REACTIONS (8)
  - CARDIOVASCULAR DISORDER [None]
  - COLD SWEAT [None]
  - DIZZINESS [None]
  - HEPATOMEGALY [None]
  - LISTLESS [None]
  - LYMPHADENOPATHY [None]
  - SPLENOMEGALY [None]
  - SYSTEMIC LUPUS ERYTHEMATOSUS [None]
